FAERS Safety Report 6861510-0 (Version None)
Quarter: 2010Q3

REPORT INFORMATION
  Report Type: 
  Country: None (occurrence: None)
  Receive Date: 20100720
  Receipt Date: 20100720
  Transmission Date: 20110219
  Serious: Yes (Hospitalization)
  Sender: FDA-Public Use
  Company Number: None

PATIENT
  Age: 76 Year
  Sex: Female

DRUGS (3)
  1. BEVACIZUMAB 15MG/KG GENENTECH [Suspect]
     Indication: OVARIAN CANCER RECURRENT
     Dosage: Q 21 DAYS IV
     Route: 042
     Dates: start: 20100617
  2. DOXIL [Suspect]
     Dosage: Q 21 DAYS IV
     Route: 042
     Dates: start: 20100527
  3. DOXIL [Suspect]
     Dosage: Q 21 DAYS IV
     Route: 042
     Dates: start: 20100617

REACTIONS (4)
  - CEREBROVASCULAR ACCIDENT [None]
  - COMMUNICATION DISORDER [None]
  - CONFUSIONAL STATE [None]
  - HEMIPARESIS [None]
